FAERS Safety Report 20615571 (Version 1)
Quarter: 2022Q1

REPORT INFORMATION
  Report Type: Report from Study
  Country: KR (occurrence: KR)
  Receive Date: 20220321
  Receipt Date: 20220321
  Transmission Date: 20220424
  Serious: Yes (Death, Other)
  Sender: FDA-Public Use
  Company Number: KR-TAKEDA-2022TUS018342

PATIENT
  Age: 73 Year
  Sex: Male

DRUGS (14)
  1. BRIGATINIB [Suspect]
     Active Substance: BRIGATINIB
     Indication: Non-small cell lung cancer
     Dosage: 90 MILLIGRAM, QD
     Route: 048
     Dates: start: 20210208, end: 20210211
  2. PREDNISOLONE [Concomitant]
     Active Substance: PREDNISOLONE
     Indication: Lung neoplasm malignant
     Dosage: UNK UNK, BID
     Route: 048
     Dates: start: 20210208, end: 20210210
  3. DOXOFYLLINE [Concomitant]
     Active Substance: DOXOFYLLINE
     Indication: Lung neoplasm malignant
     Dosage: UNK UNK, BID
     Route: 048
     Dates: start: 20210208, end: 20210210
  4. SURFOLASE [Concomitant]
     Indication: Lung neoplasm malignant
     Dosage: UNK UNK, BID
     Route: 048
     Dates: start: 20181026, end: 20210210
  5. LANSOPRAZOLE [Concomitant]
     Active Substance: LANSOPRAZOLE
     Indication: Chronic gastritis
     Dosage: 15 MILLIGRAM, QD
     Route: 048
     Dates: start: 20210208, end: 20210210
  6. NEXILEN S [Concomitant]
     Indication: Chronic gastritis
     Dosage: UNK UNK, BID
     Route: 048
     Dates: start: 20210208, end: 20210210
  7. MEGACE F [Concomitant]
     Indication: Prophylaxis
     Dosage: UNK UNK, QD
     Route: 048
     Dates: start: 20210208, end: 20210210
  8. METOCLOPRAMIDE HYDROCHLORIDE [Concomitant]
     Active Substance: METOCLOPRAMIDE HYDROCHLORIDE
     Indication: Chronic gastritis
     Dosage: UNK UNK, TID
     Route: 048
     Dates: start: 20210208, end: 20210210
  9. ENTRESTO [Concomitant]
     Active Substance: SACUBITRIL\VALSARTAN
     Indication: Angina pectoris
     Dosage: 50 MILLIGRAM, BID
     Route: 048
     Dates: start: 20190225, end: 20210210
  10. LINAGLIPTIN\METFORMIN HYDROCHLORIDE [Concomitant]
     Active Substance: LINAGLIPTIN\METFORMIN HYDROCHLORIDE
     Indication: Diabetes mellitus
     Dosage: 2.5 MILLIGRAM, BID
     Route: 048
     Dates: start: 20190108, end: 20210210
  11. GLICLAZIDE [Concomitant]
     Active Substance: GLICLAZIDE
     Indication: Diabetes mellitus
     Dosage: 60 MILLIGRAM, QD
     Route: 048
     Dates: start: 20190225, end: 20210210
  12. ASPIRIN [Concomitant]
     Active Substance: ASPIRIN
     Indication: Ischaemic cardiomyopathy
     Dosage: 100 MILLIGRAM, QD
     Route: 048
     Dates: start: 20181026, end: 20210210
  13. CARVEDILOL [Concomitant]
     Active Substance: CARVEDILOL
     Indication: Hypertension
     Dosage: 6.25 MILLIGRAM, BID
     Route: 048
     Dates: start: 20181026, end: 20210210
  14. Trestan [Concomitant]
     Indication: Decreased appetite
     Dosage: UNK UNK, BID
     Route: 048
     Dates: start: 20210208, end: 20210208

REACTIONS (1)
  - Cardiac arrest [Fatal]

NARRATIVE: CASE EVENT DATE: 20210211
